FAERS Safety Report 9146907 (Version 1)
Quarter: 2013Q1

REPORT INFORMATION
  Report Type: Spontaneous
  Country: US (occurrence: None)
  Receive Date: 20130228
  Receipt Date: 20130228
  Transmission Date: 20140127
  Serious: Yes (Other)
  Sender: FDA-Public Use
  Company Number: None

PATIENT
  Age: 55 Year
  Sex: Female

DRUGS (1)
  1. AUBAGIO [Suspect]
     Indication: MULTIPLE SCLEROSIS
     Dosage: 14 MG DAILY PO
     Route: 048
     Dates: start: 20130108, end: 20130222

REACTIONS (3)
  - Headache [None]
  - Musculoskeletal pain [None]
  - Neck pain [None]
